FAERS Safety Report 9224473 (Version 1)
Quarter: 2013Q2

REPORT INFORMATION
  Report Type: Spontaneous
  Country: US (occurrence: None)
  Receive Date: 20130409
  Receipt Date: 20130409
  Transmission Date: 20140414
  Serious: Yes (Hospitalization, Other)
  Sender: FDA-Public Use
  Company Number: None

PATIENT
  Age: 48 Year
  Sex: Female
  Weight: 90.27 kg

DRUGS (2)
  1. AMLOPIDINE [Suspect]
     Dosage: 1 DOSE DAILY PO
     Route: 048
     Dates: start: 20120207, end: 20120819
  2. BENICAR HCT 40-25 SANKYO [Suspect]
     Route: 048
     Dates: start: 20121205, end: 20130205

REACTIONS (9)
  - Cough [None]
  - Depression [None]
  - Pyrexia [None]
  - Local swelling [None]
  - Local swelling [None]
  - Swollen tongue [None]
  - Drug effect decreased [None]
  - Social avoidant behaviour [None]
  - Impaired work ability [None]
